FAERS Safety Report 4458324-8 (Version None)
Quarter: 2004Q3

REPORT INFORMATION
  Report Type: 
  Country: None (occurrence: None)
  Receive Date: 20040924
  Receipt Date: 19980907
  Transmission Date: 20050211
  Serious: Yes (Disabling, Congenital Anomaly)
  Sender: FDA-Public Use
  Company Number: B041113

PATIENT
  Age: 1 Day
  Sex: Male
  Weight: 4 kg

DRUGS (2)
  1. ZERIT [Suspect]
     Route: 064
     Dates: start: 19970101, end: 19980619
  2. EPIVIR [Suspect]
     Route: 064
     Dates: start: 19970101, end: 19980619

REACTIONS (3)
  - DRUG EXPOSURE DURING PREGNANCY [None]
  - HYPOSPADIAS [None]
  - PREPUCE REDUNDANT [None]
